FAERS Safety Report 9242099 (Version 2)
Quarter: 2013Q2

REPORT INFORMATION
  Report Type: Report from Study
  Country: DE (occurrence: DE)
  Receive Date: 20130419
  Receipt Date: 20130529
  Transmission Date: 20140414
  Serious: Yes (Death, Hospitalization)
  Sender: FDA-Public Use
  Company Number: DE-ROCHE-1216060

PATIENT
  Age: 74 Year
  Sex: Female
  Weight: 70 kg

DRUGS (9)
  1. BEVACIZUMAB [Suspect]
     Indication: RECTAL CANCER
     Route: 042
     Dates: start: 20130304, end: 20130318
  2. FLUOROURACIL [Suspect]
     Indication: RECTAL CANCER
     Route: 042
     Dates: start: 20130304, end: 20130325
  3. FOLINIC ACID [Suspect]
     Indication: RECTAL CANCER
     Route: 042
     Dates: start: 20130304, end: 20130325
  4. IRINOTECAN [Suspect]
     Indication: RECTAL CANCER
     Route: 042
     Dates: start: 20130304, end: 20130325
  5. KEVATRIL [Concomitant]
     Route: 042
     Dates: start: 20130325
  6. DEXAMETHASON [Concomitant]
     Route: 042
     Dates: start: 20130325
  7. RANITIDIN [Concomitant]
     Route: 042
     Dates: start: 20130325
  8. IMODIUM [Concomitant]
     Indication: DIARRHOEA
     Route: 048
     Dates: start: 20130325
  9. TAZOBACTAM [Concomitant]
     Indication: INFECTION
     Route: 042
     Dates: start: 201304

REACTIONS (3)
  - Dyspnoea [Fatal]
  - Multi-organ failure [Fatal]
  - General physical health deterioration [Unknown]
